FAERS Safety Report 14999790 (Version 1)
Quarter: 2018Q2

REPORT INFORMATION
  Report Type: Spontaneous
  Country: US (occurrence: US)
  Receive Date: 20180523
  Receipt Date: 20180523
  Transmission Date: 20180711
  Serious: Yes (Death, Life-Threatening)
  Sender: FDA-Public Use
  Company Number: None

PATIENT
  Age: 77 Year
  Sex: Female
  Weight: 49.4 kg

DRUGS (5)
  1. LEVOTHYROXINE. [Concomitant]
     Active Substance: LEVOTHYROXINE
     Dates: start: 20110404, end: 20180515
  2. POTASSIUM CHLORIDE. [Concomitant]
     Active Substance: POTASSIUM CHLORIDE
     Dates: start: 20180222, end: 20180515
  3. BUMETANIDE. [Concomitant]
     Active Substance: BUMETANIDE
     Dates: start: 20180228, end: 20180515
  4. ELIQUIS [Suspect]
     Active Substance: APIXABAN
     Indication: ATRIAL FIBRILLATION
     Route: 048
     Dates: start: 20160728, end: 20180515
  5. METOPROLOL SUCCINATE. [Concomitant]
     Active Substance: METOPROLOL SUCCINATE
     Dates: start: 20160728, end: 20180515

REACTIONS (5)
  - Vaginal laceration [None]
  - Vaginal haemorrhage [None]
  - Cardio-respiratory arrest [None]
  - Epistaxis [None]
  - Therapy change [None]

NARRATIVE: CASE EVENT DATE: 20180515
